FAERS Safety Report 23085280 (Version 2)
Quarter: 2023Q4

REPORT INFORMATION
  Report Type: Spontaneous
  Country: US (occurrence: US)
  Receive Date: 20231019
  Receipt Date: 20231025
  Transmission Date: 20240110
  Serious: Yes (Life-Threatening, Hospitalization)
  Sender: FDA-Public Use
  Company Number: US-002147023-NVSC2023US224357

PATIENT
  Age: 69 Year
  Sex: Male
  Weight: 60.771 kg

DRUGS (5)
  1. KYMRIAH [Suspect]
     Active Substance: TISAGENLECLEUCEL
     Indication: Follicular lymphoma
     Dosage: 50 ML, ONCE/SINGLE
     Route: 041
     Dates: start: 20220926
  2. TOCILIZUMAB [Concomitant]
     Active Substance: TOCILIZUMAB
     Indication: Product used for unknown indication
     Dosage: UNK
     Route: 065
     Dates: start: 20220927, end: 20220928
  3. SOLU-MEDROL [Concomitant]
     Active Substance: METHYLPREDNISOLONE SODIUM SUCCINATE
     Indication: Product used for unknown indication
     Dosage: 2 MG/KG, QD
     Route: 065
     Dates: start: 20220928, end: 20220930
  4. ACYCLOVIR [Concomitant]
     Active Substance: ACYCLOVIR
     Indication: Product used for unknown indication
     Dosage: UNK
     Route: 065
  5. POTASSIUM CHLORIDE [Concomitant]
     Active Substance: POTASSIUM CHLORIDE
     Indication: Product used for unknown indication
     Dosage: UNK
     Route: 065

REACTIONS (10)
  - Pyrexia [Unknown]
  - Chills [Unknown]
  - Cytokine release syndrome [Unknown]
  - Hyperpyrexia [Unknown]
  - Liver function test increased [Unknown]
  - Hypoxia [Unknown]
  - Hyponatraemia [Unknown]
  - Metabolic acidosis [Unknown]
  - Haemophilus infection [Unknown]
  - Hyperglycaemia [Unknown]

NARRATIVE: CASE EVENT DATE: 20220926
